FAERS Safety Report 14628346 (Version 1)
Quarter: 2018Q1

REPORT INFORMATION
  Report Type: Report from Study
  Country: BE (occurrence: BE)
  Receive Date: 20180312
  Receipt Date: 20180312
  Transmission Date: 20180509
  Serious: Yes (Death, Hospitalization, Other)
  Sender: FDA-Public Use
  Company Number: BE-AMGEN-BELNI2018032523

PATIENT
  Age: 74 Year
  Sex: Female
  Weight: 55 kg

DRUGS (7)
  1. FUROSEMIDE. [Concomitant]
     Active Substance: FUROSEMIDE
     Dosage: 20 MG, QD
     Route: 048
  2. IVABRADINE [Suspect]
     Active Substance: IVABRADINE
     Indication: CARDIAC FAILURE CHRONIC
     Dosage: 5 MG, QD
     Route: 048
     Dates: start: 20140127
  3. SPIRONOLACTONE. [Concomitant]
     Active Substance: SPIRONOLACTONE
     Dosage: 25 MG, QD
     Route: 048
  4. FUROSEMIDE. [Concomitant]
     Active Substance: FUROSEMIDE
     Indication: PRODUCT USED FOR UNKNOWN INDICATION
     Dosage: 40 MG, QD
     Route: 048
  5. IVABRADINE [Suspect]
     Active Substance: IVABRADINE
     Dosage: 2.5 MG, QD
     Route: 048
     Dates: start: 20140127
  6. ROSUVASTATIN. [Concomitant]
     Active Substance: ROSUVASTATIN
     Indication: PRODUCT USED FOR UNKNOWN INDICATION
     Dosage: 20 MG, QD
     Route: 048
  7. PERINDOPRIL [Concomitant]
     Active Substance: PERINDOPRIL
     Indication: PRODUCT USED FOR UNKNOWN INDICATION
     Dosage: 5 MG, QD
     Route: 048

REACTIONS (6)
  - Ventricular fibrillation [Fatal]
  - Cardiac arrest [Fatal]
  - Torsade de pointes [Fatal]
  - Cardiac failure [Unknown]
  - Ventricular tachycardia [Fatal]
  - Product use issue [Unknown]

NARRATIVE: CASE EVENT DATE: 20140127
